FAERS Safety Report 12691138 (Version 2)
Quarter: 2016Q3

REPORT INFORMATION
  Report Type: Spontaneous
  Country: FI (occurrence: FI)
  Receive Date: 20160826
  Receipt Date: 20160830
  Transmission Date: 20161109
  Serious: Yes (Other)
  Sender: FDA-Public Use
  Company Number: FI-SA-2016SA083142

PATIENT
  Age: 31 Year
  Sex: Female

DRUGS (4)
  1. KLEXANE [Suspect]
     Active Substance: ENOXAPARIN
     Indication: PULMONARY EMBOLISM
     Dosage: 100 MG/ML 0.6 ML SOLUTION FOR INJECTION
     Route: 058
     Dates: start: 20151029
  2. KLEXANE [Suspect]
     Active Substance: ENOXAPARIN
     Indication: THROMBOSIS PROPHYLAXIS
     Dosage: 100 MG/ML 0.6 ML SOLUTION FOR INJECTION
     Route: 058
     Dates: start: 20151029
  3. KLEXANE [Suspect]
     Active Substance: ENOXAPARIN
     Indication: ANTICOAGULANT THERAPY
     Dosage: 100 MG/ML 0.6 ML SOLUTION FOR INJECTION
     Route: 058
     Dates: start: 20151029
  4. HEPARIN [Concomitant]
     Active Substance: HEPARIN SODIUM
     Route: 065

REACTIONS (7)
  - Limb injury [Recovered/Resolved]
  - Pain [Unknown]
  - Injury associated with device [Recovered/Resolved]
  - Premature separation of placenta [Unknown]
  - Haemorrhage [Unknown]
  - Exposure during pregnancy [Unknown]
  - Medication error [Unknown]

NARRATIVE: CASE EVENT DATE: 20160616
